FAERS Safety Report 9512475 (Version 1)
Quarter: 2013Q1

REPORT INFORMATION
  Report Type: Spontaneous
  Country: US (occurrence: None)
  Receive Date: 20130305
  Receipt Date: 20130305
  Transmission Date: 20140127
  Serious: Yes (Other)
  Sender: FDA-Public Use
  Company Number: 163-21880-12041807

PATIENT
  Sex: 0

DRUGS (14)
  1. REVLIMID (LENALIDOMIDE) (CAPSULES) [Suspect]
     Indication: PLASMA CELL MYELOMA
     Dosage: DAILY ON DAYS 1-14 OF 21 DAY CYCLE
     Route: 048
  2. BORTEZOMIB (BORTEZOMIB) (UNKNOWN) [Suspect]
     Indication: PLASMA CELL MYELOMA
     Dosage: DAYS 1,4,8 AND 11
  3. DEXAMETHASONE (DEXAMETHASONE) (UNKNOWN) [Suspect]
     Indication: PLASMA CELL MYELOMA
     Dosage: DAYS 1,2,4,5,8,9,11, AND 12
     Route: 048
  4. DOXORUBICIN [Suspect]
     Indication: PLASMA CELL MYELOMA
     Dosage: DAY 4
  5. ASPIRIN (ACETYLSALICYLIC ACID) (UNKNOWN) (ACETYLSALICYLIC ACID) [Concomitant]
  6. ACYCLOVIR (ACICLOVIR) (UNKNOWN) [Concomitant]
  7. HEPARIN (HEPARIN) (UNKNOWN) [Concomitant]
  8. COUMADIN (WARFARIN SODIUM) (UNKNOWN) [Concomitant]
  9. BISPHOSPHONATES (BISPHOSPHONATES) (UNKNOWN) [Concomitant]
  10. CYCLOPHOSPHAMIDE (UNKNOWN) [Concomitant]
  11. G-CSF (GRANULOCYTE COLONY STIMULATING FACTOR) (UNKNOWN) [Concomitant]
  12. PLERIXAFOR (PLERIXAFOR) (UNKNOWN) [Concomitant]
  13. SAGRAMOSTIM (SAGRAMOSTIM) (UNKNOWN) [Concomitant]
  14. ETOPOSIDE (ETOPOSIDE) (UNKNOWN) [Concomitant]

REACTIONS (10)
  - Neutropenia [None]
  - Infection [None]
  - Thrombocytopenia [None]
  - Deep vein thrombosis [None]
  - Peripheral sensory neuropathy [None]
  - Pulmonary embolism [None]
  - Ejection fraction decreased [None]
  - Palmar-plantar erythrodysaesthesia syndrome [None]
  - Fatigue [None]
  - Constipation [None]
